FAERS Safety Report 6927451-5 (Version None)
Quarter: 2010Q3

REPORT INFORMATION
  Report Type: 
  Country: None (occurrence: None)
  Receive Date: 20100817
  Receipt Date: 20100805
  Transmission Date: 20110219
  Serious: Yes (Other)
  Sender: FDA-Public Use
  Company Number: US-JNJFOC-20100500634

PATIENT
  Age: 51 Year
  Sex: Female

DRUGS (13)
  1. REMICADE [Suspect]
     Indication: RHEUMATOID ARTHRITIS
     Route: 042
  2. REMICADE [Suspect]
     Route: 042
  3. METHOTREXATE [Concomitant]
     Route: 048
  4. PRAVACHOL [Concomitant]
     Route: 048
  5. ALTACE [Concomitant]
     Route: 048
  6. TOPROL-XL [Concomitant]
     Route: 048
  7. PLAVIX [Concomitant]
     Route: 048
  8. ASPIRIN [Concomitant]
     Route: 048
  9. CALTRATE [Concomitant]
     Route: 048
  10. FOLIC ACID [Concomitant]
     Route: 048
  11. PRILOSEC [Concomitant]
     Route: 048
  12. ANTIVERT [Concomitant]
     Route: 048
  13. METFORMIN [Concomitant]
     Route: 048

REACTIONS (9)
  - ADVERSE REACTION [None]
  - BLOOD GLUCOSE INCREASED [None]
  - BLOOD PRESSURE INCREASED [None]
  - CHEST PAIN [None]
  - CORONARY ARTERY DISEASE [None]
  - HYPERHIDROSIS [None]
  - NAUSEA [None]
  - PALPITATIONS [None]
  - SPLINTER [None]
